FAERS Safety Report 7794863-X (Version None)
Quarter: 2011Q4

REPORT INFORMATION
  Report Type: 
  Country: None (occurrence: None)
  Receive Date: 20111004
  Receipt Date: 20110922
  Transmission Date: 20120403
  Serious: Yes (Life-Threatening, Hospitalization)
  Sender: FDA-Public Use
  Company Number: PHHY2011JP71637

PATIENT
  Sex: Male

DRUGS (2)
  1. EXFORGE [Suspect]
     Dosage: 1 DF, QD
     Route: 048
  2. RASILEZ [Suspect]
     Dosage: 150 MG, QD
     Route: 048
     Dates: end: 20110801

REACTIONS (1)
  - RENAL FAILURE ACUTE [None]
